FAERS Safety Report 11049752 (Version 1)
Quarter: 2015Q2

REPORT INFORMATION
  Report Type: Spontaneous
  Country: US (occurrence: US)
  Receive Date: 20150420
  Receipt Date: 20150420
  Transmission Date: 20150821
  Serious: No
  Sender: FDA-Public Use
  Company Number: US-PURDUE-USA-2015-0121609

PATIENT
  Age: 63 Year
  Sex: Female
  Weight: 56 kg

DRUGS (5)
  1. LYRICA [Suspect]
     Active Substance: PREGABALIN
     Indication: NERVE INJURY
     Dosage: 75 MG, UNK
     Route: 048
     Dates: start: 201412
  2. LYRICA [Suspect]
     Active Substance: PREGABALIN
     Dosage: 75 MG, DAILY
     Route: 048
     Dates: start: 201412
  3. LYRICA [Suspect]
     Active Substance: PREGABALIN
     Dosage: 50 MG, UNK
     Route: 048
     Dates: start: 201412
  4. LORTAB [Concomitant]
     Active Substance: ACETAMINOPHEN\HYDROCODONE BITARTRATE
     Indication: PAIN
     Dosage: 10 MG, UNK
     Route: 048
     Dates: start: 1999
  5. OXYCONTIN [Suspect]
     Active Substance: OXYCODONE HYDROCHLORIDE
     Indication: PAIN
     Dosage: UNK MG, UNK
     Route: 048

REACTIONS (4)
  - Depression [Unknown]
  - Drug intolerance [Unknown]
  - Drug ineffective [Unknown]
  - Alopecia [Unknown]
